FAERS Safety Report 16412650 (Version 1)
Quarter: 2019Q2

REPORT INFORMATION
  Report Type: Spontaneous
  Country: US (occurrence: US)
  Receive Date: 20190611
  Receipt Date: 20190611
  Transmission Date: 20190711
  Serious: No
  Sender: FDA-Public Use
  Company Number: US-TEVA-2019-US-1052840

PATIENT
  Age: 65 Year
  Sex: Male

DRUGS (4)
  1. ALBUTEROL. [Concomitant]
     Active Substance: ALBUTEROL
  2. VENTOLIN [Concomitant]
     Active Substance: ALBUTEROL SULFATE
  3. LIDOCAINE. [Suspect]
     Active Substance: LIDOCAINE
     Indication: ARTHRALGIA
     Dosage: LIDOCAINE TOPICAL 5% PATCH: 3 PATCHES A DAY
     Route: 061
     Dates: start: 201905
  4. LIDOCAINE. [Suspect]
     Active Substance: LIDOCAINE
     Indication: NECK PAIN
     Dosage: LIDOCAINE TOPICAL 5% PATCH: 2 PATCHES A DAY
     Route: 061
     Dates: start: 20180425

REACTIONS (1)
  - Dyspnoea [Unknown]
